FAERS Safety Report 6628773-8 (Version None)
Quarter: 2010Q1

REPORT INFORMATION
  Report Type: 
  Country: None (occurrence: None)
  Receive Date: 20100311
  Receipt Date: 20100301
  Transmission Date: 20100710
  Serious: Yes (Other)
  Sender: FDA-Public Use
  Company Number: FR-PFIZER INC-2010025916

PATIENT
  Age: 52 Year
  Sex: Female

DRUGS (4)
  1. CHAMPIX [Suspect]
     Dosage: UNK
  2. TAHOR [Suspect]
  3. OLMESARTAN MEDOXOMIL [Concomitant]
     Indication: HYPOTENSION
  4. RIVOTRIL [Concomitant]
     Dosage: UNK

REACTIONS (5)
  - ANGIOEDEMA [None]
  - HYPOTENSION [None]
  - PRESYNCOPE [None]
  - PRURITUS [None]
  - URTICARIA [None]
